FAERS Safety Report 20866263 (Version 1)
Quarter: 2022Q2

REPORT INFORMATION
  Report Type: Other
  Country: ES (occurrence: ES)
  Receive Date: 20220524
  Receipt Date: 20220524
  Transmission Date: 20220721
  Serious: Yes (Other)
  Sender: FDA-Public Use
  Company Number: ES-MACLEODS PHARMACEUTICALS US LTD-MAC2022035644

PATIENT

DRUGS (1)
  1. AMLODIPINE\OLMESARTAN [Suspect]
     Active Substance: AMLODIPINE\OLMESARTAN
     Indication: Hypertension
     Dosage: UNK
     Route: 048
     Dates: start: 20211220

REACTIONS (4)
  - Urinary hesitation [Unknown]
  - Dysuria [Unknown]
  - Polyuria [Unknown]
  - Erectile dysfunction [Unknown]

NARRATIVE: CASE EVENT DATE: 20220227
